FAERS Safety Report 8815995 (Version 1)
Quarter: 2012Q4

REPORT INFORMATION
  Report Type: 
  Country: US (occurrence: US)
  Receive Date: 20120928
  Receipt Date: 20120928
  Transmission Date: 20130627
  Serious: No
  Sender: FDA-Public Use
  Company Number: US-VIIV HEALTHCARE LIMITED-A0972456A

PATIENT
  Sex: Male

DRUGS (13)
  1. EPZICOM [Suspect]
     Indication: HIV INFECTION
     Dosage: 300MG Per day
     Route: 048
     Dates: start: 20111107
  2. ZOCOR [Concomitant]
  3. ZOLOFT [Concomitant]
  4. OMEPRAZOLE [Concomitant]
  5. METHADONE [Concomitant]
  6. METFORMIN [Concomitant]
  7. LISINOPRIL [Concomitant]
  8. HUMALOG [Concomitant]
  9. LANTUS [Concomitant]
  10. GABAPENTIN [Concomitant]
  11. FLOVENT [Concomitant]
  12. VITAMIN D3 [Concomitant]
  13. ALBUTEROL [Concomitant]

REACTIONS (5)
  - Rash [Recovered/Resolved]
  - Nausea [Unknown]
  - Asthenia [Unknown]
  - Vomiting [Unknown]
  - Back pain [Unknown]
